FAERS Safety Report 14582114 (Version 2)
Quarter: 2018Q1

REPORT INFORMATION
  Report Type: Spontaneous
  Country: US (occurrence: US)
  Receive Date: 20180228
  Receipt Date: 20180305
  Transmission Date: 20180509
  Serious: No
  Sender: FDA-Public Use
  Company Number: US-PFIZER INC-2018081329

PATIENT
  Age: 66 Year
  Sex: Female

DRUGS (1)
  1. EUCRISA [Suspect]
     Active Substance: CRISABOROLE
     Dosage: UNK, 2X/DAY (APPLY TO AFFECTED AREA TWICE A DAY)

REACTIONS (1)
  - Application site pain [Unknown]
